FAERS Safety Report 14475981 (Version 4)
Quarter: 2021Q4

REPORT INFORMATION
  Report Type: Spontaneous
  Country: PT (occurrence: PT)
  Receive Date: 20180201
  Receipt Date: 20211119
  Transmission Date: 20220303
  Serious: Yes (Life-Threatening, Other)
  Sender: FDA-Public Use
  Company Number: PT-AUROBINDO-AUR-APL-2018-001930

PATIENT
  Age: 70 Year
  Sex: Male

DRUGS (17)
  1. SIMVASTATIN [Suspect]
     Active Substance: SIMVASTATIN
     Indication: Dyslipidaemia
     Dosage: 20 MG, QD
     Route: 065
  2. PHENYTOIN [Suspect]
     Active Substance: PHENYTOIN
     Indication: Meningioma surgery
     Dosage: 100 MG, Q8H
     Route: 065
     Dates: start: 20140318, end: 20140325
  3. PHENYTOIN [Suspect]
     Active Substance: PHENYTOIN
     Indication: Meningioma
     Dosage: 300 MILLIGRAM, QD
     Route: 065
     Dates: start: 20140318, end: 20140325
  4. AMOXICILLIN [Suspect]
     Active Substance: AMOXICILLIN
     Indication: Productive cough
     Dosage: UNK
     Dates: start: 20140321, end: 20140325
  5. LORAZEPAM [Concomitant]
     Active Substance: LORAZEPAM
     Indication: Product used for unknown indication
     Dosage: 2.5 MG, QD
     Route: 065
  6. HYDROXYZINE                        /00058402/ [Concomitant]
     Indication: Limb injury
     Dosage: UNK
  7. HYDROXYZINE                        /00058402/ [Concomitant]
     Indication: Pruritus allergic
  8. HYDROCHLOROTHIAZIDE\VALSARTAN [Concomitant]
     Active Substance: HYDROCHLOROTHIAZIDE\VALSARTAN
     Indication: Hypertension
     Dosage: VALSARTAN 80 MG + HYDROCHLOROTHIAZIDE 12.5 MG PER DAY
  9. GADOLINIUM [Concomitant]
     Active Substance: GADOLINIUM
     Indication: Magnetic resonance imaging
     Dosage: UNK
     Route: 065
  10. OMEPRAZOLE [Concomitant]
     Active Substance: OMEPRAZOLE
     Indication: Product used for unknown indication
     Dosage: 20 MG, QD
     Route: 065
  11. DEFLAZACORT [Concomitant]
     Active Substance: DEFLAZACORT
     Indication: Limb injury
     Dosage: UNK
     Route: 065
  12. DEFLAZACORT [Concomitant]
     Active Substance: DEFLAZACORT
     Indication: Pruritus allergic
  13. PREDNISOLONE [Concomitant]
     Active Substance: PREDNISOLONE
     Indication: Magnetic resonance imaging
     Dosage: 1 MG/KG, QD
     Route: 065
  14. HYDROCHLOROTHIAZIDE [Concomitant]
     Active Substance: HYDROCHLOROTHIAZIDE
     Indication: Hypertension
     Dosage: 12.5 MILLIGRAM, QD
     Route: 065
  15. VALSARTAN [Concomitant]
     Active Substance: VALSARTAN
     Indication: Hypertension
     Dosage: 80 MILLIGRAM, QD
     Route: 065
  16. AMOXICILLINE                       /00249601/ [Concomitant]
     Indication: Product used for unknown indication
     Dosage: UNK
  17. AMOXICILLINE                       /00249601/ [Concomitant]
     Dosage: 20 MILLIGRAM, QD

REACTIONS (11)
  - Drug reaction with eosinophilia and systemic symptoms [Recovered/Resolved]
  - Drug hypersensitivity [Recovered/Resolved]
  - Conjunctival hyperaemia [Unknown]
  - Erythema [Unknown]
  - Pruritus [Unknown]
  - Rash [Unknown]
  - Oedema peripheral [Unknown]
  - Lymphadenopathy [Unknown]
  - Face oedema [Unknown]
  - Pyrexia [Unknown]
  - Eosinophilia [Unknown]

NARRATIVE: CASE EVENT DATE: 20140101
